FAERS Safety Report 15425881 (Version 3)
Quarter: 2019Q2

REPORT INFORMATION
  Report Type: Spontaneous
  Country: US (occurrence: US)
  Receive Date: 20180925
  Receipt Date: 20190523
  Transmission Date: 20190711
  Serious: Yes (Other)
  Sender: FDA-Public Use
  Company Number: US-PFIZER INC-2018381016

PATIENT
  Age: 55 Year
  Sex: Male
  Weight: 93.89 kg

DRUGS (3)
  1. VIAGRA [Suspect]
     Active Substance: SILDENAFIL CITRATE
     Indication: ERECTILE DYSFUNCTION
     Dosage: 100 MG, AS NEEDED
     Dates: end: 201806
  2. ALBUTEROL SULFATE. [Concomitant]
     Active Substance: ALBUTEROL SULFATE
     Indication: ASTHMA
     Dosage: INHALER TWICE A DAY, 2 PUFFS IN MORNING AND 2 PUFFS AT NIGHT
  3. NIFEDIPINE. [Concomitant]
     Active Substance: NIFEDIPINE
     Indication: BLOOD PRESSURE ABNORMAL
     Dosage: 60 MG, DAILY

REACTIONS (3)
  - Sleep disorder [Not Recovered/Not Resolved]
  - Headache [Recovering/Resolving]
  - Intracranial aneurysm [Not Recovered/Not Resolved]

NARRATIVE: CASE EVENT DATE: 201808
